FAERS Safety Report 6066192-6 (Version None)
Quarter: 2009Q1

REPORT INFORMATION
  Report Type: 
  Country: None (occurrence: None)
  Receive Date: 20090205
  Receipt Date: 20090128
  Transmission Date: 20090719
  Serious: Yes (Hospitalization, Other)
  Sender: FDA-Public Use
  Company Number: PHHY2008JP17502

PATIENT
  Age: 49 Year
  Sex: Male
  Weight: 76 kg

DRUGS (4)
  1. TEGRETOL [Suspect]
     Indication: EPILEPSY
     Dosage: 100 MG/DAY
     Route: 048
     Dates: end: 20080621
  2. TEGRETOL [Suspect]
     Dosage: 1 MG/DAY
     Route: 048
     Dates: start: 20080801, end: 20080804
  3. DEPAKENE [Concomitant]
  4. ALEVIATIN [Concomitant]

REACTIONS (19)
  - ACUTE MYOCARDIAL INFARCTION [None]
  - ALANINE AMINOTRANSFERASE INCREASED [None]
  - ASPARTATE AMINOTRANSFERASE INCREASED [None]
  - BLOOD BILIRUBIN INCREASED [None]
  - BRAIN HERNIATION [None]
  - CATHETER PLACEMENT [None]
  - CEREBRAL DECOMPRESSION [None]
  - CEREBRAL INFARCTION [None]
  - DEPRESSED LEVEL OF CONSCIOUSNESS [None]
  - DRUG ERUPTION [None]
  - DYSPNOEA [None]
  - ERYTHEMA [None]
  - GAMMA-GLUTAMYLTRANSFERASE INCREASED [None]
  - LIVER DISORDER [None]
  - OXYGEN SUPPLEMENTATION [None]
  - PYREXIA [None]
  - RASH PAPULAR [None]
  - VOMITING [None]
  - WHITE BLOOD CELL COUNT INCREASED [None]
